FAERS Safety Report 10233556 (Version 1)
Quarter: 2014Q2

REPORT INFORMATION
  Report Type: Spontaneous
  Country: BR (occurrence: BR)
  Receive Date: 20140612
  Receipt Date: 20140612
  Transmission Date: 20141212
  Serious: Yes (Hospitalization)
  Sender: FDA-Public Use
  Company Number: BR-ABBVIE-14P-020-1246631-00

PATIENT
  Sex: Female
  Weight: 90 kg

DRUGS (8)
  1. DEPAKENE [Suspect]
     Indication: BIPOLAR DISORDER
     Dosage: DAILY DOSE: 1000 MG; AFTER LUNCH AND BEFORE GOING TO BED
     Route: 048
     Dates: start: 2003
  2. CLONAZEPAM [Concomitant]
     Indication: BIPOLAR DISORDER
     Dosage: DAILY DOSE: 2 MG; BEFORE GOING TO BED AT NIGHT
     Route: 048
  3. NORTRIPTYLINE [Concomitant]
     Indication: BIPOLAR DISORDER
     Dosage: DAILY DOSE: 75 MG; 3 TABLETS, BEFORE GOING TO BED AT NIGHT
     Route: 048
  4. PROMETHAZINE HYDROCHLORIDE [Concomitant]
     Indication: BIPOLAR DISORDER
     Dosage: DAILY DOSE: 50 MG; BEFORE GOING TO BED AT NIGHT
     Route: 048
  5. ATENOLOL [Concomitant]
     Indication: BLOOD PRESSURE
     Dosage: DAILY DOSE: 25 MG; BEFORE GOING TO BED AT NIGHT
     Route: 048
  6. LOSARTAN POTASSIUM [Concomitant]
     Indication: BLOOD PRESSURE
     Dosage: DAILY DOSE: 50 MG; BEFORE GOING TO BED AT NIGHT
     Route: 048
  7. SIMVASTATIN [Concomitant]
     Indication: BLOOD TRIGLYCERIDES
     Dosage: DAILY DOSE: 25 MG; BEFORE GOING TO BED AT NIGHT
     Route: 048
  8. VENLAFAXINE HYDROCHLORIDE [Concomitant]
     Indication: BIPOLAR DISORDER
     Dosage: DAILY DOSE: 150 MG; BEFORE GOING TO BED AT NIGHT
     Route: 048

REACTIONS (6)
  - Mental disorder [Unknown]
  - Memory impairment [Unknown]
  - Nausea [Recovered/Resolved]
  - Product taste abnormal [Recovered/Resolved]
  - Malaise [Recovered/Resolved]
  - Product physical issue [Unknown]
